FAERS Safety Report 8885314 (Version 1)
Quarter: 2012Q4

REPORT INFORMATION
  Report Type: 
  Country: US (occurrence: US)
  Receive Date: 20121105
  Receipt Date: 20121105
  Transmission Date: 20130627
  Serious: Yes (Other)
  Sender: FDA-Public Use
  Company Number: US-JNJFOC-20121017205

PATIENT
  Sex: Female

DRUGS (1)
  1. INFLIXIMAB, RECOMBINANT [Suspect]
     Indication: INFLAMMATORY BOWEL DISEASE
     Route: 042

REACTIONS (5)
  - Stillbirth [Unknown]
  - Abortion spontaneous [Unknown]
  - Abortion spontaneous [Unknown]
  - Premature labour [Unknown]
  - Exposure during pregnancy [Unknown]
